FAERS Safety Report 5406010-X (Version None)
Quarter: 2007Q3

REPORT INFORMATION
  Report Type: 
  Country: None (occurrence: None)
  Receive Date: 20070802
  Receipt Date: 20070719
  Transmission Date: 20080115
  Serious: Yes (Other)
  Sender: FDA-Public Use
  Company Number: 6035682

PATIENT
  Sex: Female

DRUGS (2)
  1. BISOMERCK 10 MG (10 MG, TABLE) (BISOPROLOL FUMARATE) [Suspect]
     Indication: SUICIDE ATTEMPT
     Dosage: 100 MG (10 MG, 10 IN 1 ONCE) ORAL
     Route: 048
  2. ALCOHOL (ETHANOL) [Suspect]
     Indication: DRUG USE FOR UNKNOWN INDICATION

REACTIONS (3)
  - DIZZINESS [None]
  - OVERDOSE [None]
  - SUICIDE ATTEMPT [None]
